FAERS Safety Report 13108708 (Version 1)
Quarter: 2017Q1

REPORT INFORMATION
  Report Type: Spontaneous
  Country: US (occurrence: US)
  Receive Date: 20170111
  Receipt Date: 20170111
  Transmission Date: 20170428
  Serious: Yes (Other)
  Sender: FDA-Public Use
  Company Number: None

PATIENT
  Age: 6 Month
  Sex: Female
  Weight: 6.75 kg

DRUGS (1)
  1. ORAJEL INSTANT RELIEF FOR TEETHING PAIN DAYTIME NIGHTTIME TWIN PACK [Suspect]
     Active Substance: BENZOCAINE
     Indication: TEETHING

REACTIONS (3)
  - Methaemoglobinaemia [None]
  - Respiration abnormal [None]
  - Fatigue [None]

NARRATIVE: CASE EVENT DATE: 20170108
